FAERS Safety Report 17827190 (Version 2)
Quarter: 2020Q3

REPORT INFORMATION
  Report Type: Spontaneous
  Country: BE (occurrence: BE)
  Receive Date: 20200527
  Receipt Date: 20200901
  Transmission Date: 20201102
  Serious: Yes (Death)
  Sender: FDA-Public Use
  Company Number: BE-TEVA-2020-BE-1238800

PATIENT
  Age: 77 Year
  Sex: Female
  Weight: 92 kg

DRUGS (11)
  1. QUETIAPINE. [Concomitant]
     Active Substance: QUETIAPINE
  2. STALEVO [Concomitant]
     Active Substance: CARBIDOPA\ENTACAPONE\LEVODOPA
     Route: 065
  3. D?CURE [Concomitant]
     Active Substance: CHOLECALCIFEROL
  4. LISINOPRIL. [Concomitant]
     Active Substance: LISINOPRIL
  5. CARDIOASPIRINE [Concomitant]
     Active Substance: ASPIRIN
  6. PACLITAXEL. [Concomitant]
     Active Substance: PACLITAXEL
     Indication: BREAST CANCER FEMALE
     Route: 042
     Dates: start: 20191213, end: 20200110
  7. DEXAMETHASONE. [Concomitant]
     Active Substance: DEXAMETHASONE
     Indication: CHEMOTHERAPY SIDE EFFECT PROPHYLAXIS
     Route: 048
  8. PROPRANOLOL [Concomitant]
     Active Substance: PROPRANOLOL HYDROCHLORIDE
  9. SOLU?MEDROL [Concomitant]
     Active Substance: METHYLPREDNISOLONE SODIUM SUCCINATE
     Dosage: ON THE DAY OF THE CHEMOTHERAPY
     Route: 042
  10. BELLOZAL [Concomitant]
     Active Substance: BILASTINE
     Dosage: ON THE DAY OF THE CHEMOTHERAPY
     Route: 048
  11. TEVAGRASTIM [Suspect]
     Active Substance: FILGRASTIM
     Indication: NEUTROPENIA
     Dosage: DOSAGE FORM: 1 INJECTION?FORM OF ADMINISTRATION: SYRINGE
     Route: 058
     Dates: start: 20200114

REACTIONS (10)
  - Extrasystoles [Fatal]
  - Circulatory collapse [Fatal]
  - Anxiety [Fatal]
  - Hypersensitivity [Fatal]
  - Skin discolouration [Fatal]
  - Fatigue [Fatal]
  - Malaise [Fatal]
  - Dyspnoea [Fatal]
  - Feeling abnormal [Fatal]
  - Respiration abnormal [Fatal]

NARRATIVE: CASE EVENT DATE: 20200114
